FAERS Safety Report 14274722 (Version 1)
Quarter: 2017Q4

REPORT INFORMATION
  Report Type: Spontaneous
  Country: US (occurrence: US)
  Receive Date: 20171212
  Receipt Date: 20171212
  Transmission Date: 20180321
  Serious: Yes (Hospitalization)
  Sender: FDA-Public Use
  Company Number: None

PATIENT
  Age: 78 Year
  Sex: Male
  Weight: 137.25 kg

DRUGS (10)
  1. CARBOPLATIN. [Suspect]
     Active Substance: CARBOPLATIN
     Indication: PROSTATE CANCER METASTATIC
     Dosage: OTHER FREQUENCY:Q3W;?
     Route: 041
     Dates: start: 20170914, end: 20171116
  2. PREDNISONE. [Concomitant]
     Active Substance: PREDNISONE
  3. POTASSIUM CHLORIDE. [Concomitant]
     Active Substance: POTASSIUM CHLORIDE
  4. APIXABAN [Concomitant]
     Active Substance: APIXABAN
  5. CABAZITAXEL [Suspect]
     Active Substance: CABAZITAXEL
     Indication: PROSTATE CANCER METASTATIC
     Dosage: OTHER FREQUENCY:Q3W;?
     Route: 041
     Dates: start: 20170914, end: 20171116
  6. TELMISARTAN. [Concomitant]
     Active Substance: TELMISARTAN
  7. FUROSEMIDE. [Concomitant]
     Active Substance: FUROSEMIDE
  8. METOPROLOL SUCCINATE. [Concomitant]
     Active Substance: METOPROLOL SUCCINATE
  9. NEBIVILOL [Concomitant]
  10. AMLODIPINE [Concomitant]
     Active Substance: AMLODIPINE BESYLATE

REACTIONS (2)
  - Haemoglobin decreased [None]
  - Rectal haemorrhage [None]

NARRATIVE: CASE EVENT DATE: 20171211
